FAERS Safety Report 9162601 (Version 1)
Quarter: 2013Q1

REPORT INFORMATION
  Report Type: Spontaneous
  Country: CN (occurrence: None)
  Receive Date: 20130225
  Receipt Date: 20130225
  Transmission Date: 20140127
  Serious: No
  Sender: FDA-Public Use
  Company Number: VAL_01429_2013

PATIENT
  Age: 77 Year
  Sex: Male

DRUGS (2)
  1. PARLODEL [Suspect]
     Indication: PARKINSON^S DISEASE
     Route: 048
     Dates: start: 20091012, end: 20091012
  2. NIMODIPINE [Suspect]
     Indication: HYPERTENSION
     Route: 048
     Dates: start: 20091012, end: 20091012

REACTIONS (2)
  - Blood pressure decreased [None]
  - Abasia [None]
